FAERS Safety Report 19583561 (Version 4)
Quarter: 2021Q3

REPORT INFORMATION
  Report Type: Spontaneous
  Country: US (occurrence: US)
  Receive Date: 20210720
  Receipt Date: 20210827
  Transmission Date: 20211014
  Serious: Yes (Hospitalization, Other)
  Sender: FDA-Public Use
  Company Number: US-JNJFOC-20210728785

PATIENT
  Age: 67 Year
  Sex: Male
  Weight: 98.06 kg

DRUGS (9)
  1. XARELTO [Suspect]
     Active Substance: RIVAROXABAN
     Indication: THROMBOSIS PROPHYLAXIS
     Dosage: 20 MG, UNK
     Route: 048
     Dates: start: 2012
  2. XARELTO [Suspect]
     Active Substance: RIVAROXABAN
     Indication: THROMBOSIS PROPHYLAXIS
     Dosage: UNK
     Route: 048
     Dates: start: 202104, end: 20210531
  3. VITAMIN B3 [Concomitant]
     Active Substance: NIACIN
     Indication: PRODUCT USED FOR UNKNOWN INDICATION
  4. ASCORBIC ACID. [Concomitant]
     Active Substance: ASCORBIC ACID
     Indication: PRODUCT USED FOR UNKNOWN INDICATION
  5. KRILL OIL [Concomitant]
     Active Substance: DIETARY SUPPLEMENT\KRILL OIL
     Indication: PRODUCT USED FOR UNKNOWN INDICATION
  6. TURMERIC [CURCUMA LONGA RHIZOME] [Concomitant]
     Active Substance: HERBALS\TURMERIC
     Indication: PRODUCT USED FOR UNKNOWN INDICATION
  7. SAW PALMETTO [SERENOA REPENS] [Concomitant]
     Active Substance: HERBALS\SAW PALMETTO
     Indication: PRODUCT USED FOR UNKNOWN INDICATION
  8. ALLOPURINOL. [Concomitant]
     Active Substance: ALLOPURINOL
     Indication: GOUT
  9. VITAMINS NOS [Concomitant]
     Active Substance: VITAMINS

REACTIONS (2)
  - Deep vein thrombosis [Unknown]
  - Product counterfeit [Unknown]

NARRATIVE: CASE EVENT DATE: 20210531
